FAERS Safety Report 6411005-3 (Version None)
Quarter: 2009Q4

REPORT INFORMATION
  Report Type: 
  Country: None (occurrence: None)
  Receive Date: 20091022
  Receipt Date: 20091015
  Transmission Date: 20100525
  Serious: Yes (Hospitalization)
  Sender: FDA-Public Use
  Company Number: US-GILEAD-2009-0024862

PATIENT
  Sex: Female
  Weight: 63.56 kg

DRUGS (8)
  1. LETAIRIS [Suspect]
     Indication: PULMONARY ARTERIAL HYPERTENSION
     Route: 048
     Dates: start: 20080229
  2. TOPROL-XL [Concomitant]
  3. ATACAND [Concomitant]
  4. ADVAIR 100/50 DISKUS [Concomitant]
  5. ATROVENT [Concomitant]
  6. RHINOCORT [Concomitant]
  7. REGLAN [Concomitant]
  8. PLAQUENIL [Concomitant]

REACTIONS (1)
  - COLITIS [None]
